FAERS Safety Report 4764926-1 (Version None)
Quarter: 2005Q3

REPORT INFORMATION
  Report Type: 
  Country: None (occurrence: None)
  Receive Date: 20050909
  Receipt Date: 20050627
  Transmission Date: 20060218
  Serious: Yes (Disabling)
  Sender: FDA-Public Use
  Company Number: FR-ROCHE-409579

PATIENT
  Age: 37 Year
  Sex: Female
  Weight: 53 kg

DRUGS (5)
  1. PEGASYS [Suspect]
     Indication: HEPATITIS C
     Dosage: FORM REPORTED AS INJECTABLE SOLUTION.
     Route: 058
     Dates: start: 20050512, end: 20050704
  2. ABACAVIR [Concomitant]
     Route: 048
     Dates: start: 19990615
  3. DDI [Concomitant]
     Route: 048
     Dates: start: 19990615
  4. NELFINAVIR [Concomitant]
     Route: 048
     Dates: start: 19990615
  5. RIBAVIRIN [Concomitant]
     Indication: HEPATITIS C
     Route: 048
     Dates: end: 20050704

REACTIONS (4)
  - ARTHRALGIA [None]
  - ASTHENIA [None]
  - NEUTROPENIA [None]
  - UVEITIS [None]
